FAERS Safety Report 7264573-6 (Version None)
Quarter: 2011Q1

REPORT INFORMATION
  Report Type: 
  Country: None (occurrence: None)
  Receive Date: 20110131
  Receipt Date: 20110125
  Transmission Date: 20110831
  Serious: No
  Sender: FDA-Public Use
  Company Number: US-PFIZER INC-2011017889

PATIENT
  Sex: Female

DRUGS (4)
  1. TRICOR [Concomitant]
  2. LORAZEPAM [Concomitant]
  3. METFORMIN [Concomitant]
     Dosage: 500 MG, UNK
  4. LYRICA [Suspect]
     Dosage: UNK

REACTIONS (3)
  - SOMNOLENCE [None]
  - WEIGHT INCREASED [None]
  - DIARRHOEA [None]
